FAERS Safety Report 10202238 (Version 1)
Quarter: 2014Q2

REPORT INFORMATION
  Report Type: Spontaneous
  Country: US (occurrence: US)
  Receive Date: 20140528
  Receipt Date: 20140528
  Transmission Date: 20141212
  Serious: No
  Sender: FDA-Public Use
  Company Number: US-BRISTOL-MYERS SQUIBB COMPANY-20166112

PATIENT
  Age: 77 Year
  Sex: Female
  Weight: 98.41 kg

DRUGS (5)
  1. BYDUREON [Suspect]
  2. METFORMIN HCL [Suspect]
  3. LISINOPRIL [Suspect]
  4. GLIMEPIRIDE [Suspect]
  5. COREG [Concomitant]

REACTIONS (1)
  - Blood glucose increased [Unknown]
